FAERS Safety Report 23028237 (Version 1)
Quarter: 2023Q4

REPORT INFORMATION
  Report Type: Spontaneous
  Country: US (occurrence: None)
  Receive Date: 20231003
  Receipt Date: 20231003
  Transmission Date: 20240110
  Serious: No
  Sender: FDA-Public Use
  Company Number: None

PATIENT
  Age: 10 Year
  Sex: Male

DRUGS (1)
  1. GENOTROPIN [Suspect]
     Active Substance: SOMATROPIN
     Indication: Hypopituitarism
     Dosage: 1.4MG : NIGHTLY SC?
     Route: 058
     Dates: start: 202302

REACTIONS (3)
  - Injection site mass [None]
  - Screaming [None]
  - Pain [None]

NARRATIVE: CASE EVENT DATE: 20230930
